FAERS Safety Report 10628444 (Version 1)
Quarter: 2014Q4

REPORT INFORMATION
  Report Type: Spontaneous
  Country: US (occurrence: US)
  Receive Date: 20141205
  Receipt Date: 20141205
  Transmission Date: 20150529
  Serious: No
  Sender: FDA-Public Use
  Company Number: US-BRISTOL-MYERS SQUIBB COMPANY-21188453

PATIENT
  Age: 56 Year
  Sex: Female

DRUGS (15)
  1. LOVAZA [Concomitant]
     Active Substance: OMEGA-3-ACID ETHYL ESTERS
     Indication: BLOOD CHOLESTEROL INCREASED
     Route: 048
  2. PHENOBARBITAL. [Concomitant]
     Active Substance: PHENOBARBITAL
  3. FENTANYL. [Concomitant]
     Active Substance: FENTANYL
  4. LOVAZA [Concomitant]
     Active Substance: OMEGA-3-ACID ETHYL ESTERS
     Indication: ARTERIAL DISORDER
     Route: 048
  5. CATAPRES [Concomitant]
     Active Substance: CLONIDINE HYDROCHLORIDE
  6. KLONOPIN [Concomitant]
     Active Substance: CLONAZEPAM
  7. XARELTO [Interacting]
     Active Substance: RIVAROXABAN
     Indication: THROMBOSIS
     Dosage: 1DF: 1CAP
  8. FONDAPARINUX SODIUM. [Concomitant]
     Active Substance: FONDAPARINUX SODIUM
  9. METAMUCIL [Concomitant]
     Active Substance: PLANTAGO SEED
  10. HEPARIN [Concomitant]
     Active Substance: HEPARIN SODIUM
  11. WARFARIN SODIUM. [Suspect]
     Active Substance: WARFARIN SODIUM
  12. MUCINEX [Concomitant]
     Active Substance: GUAIFENESIN
  13. NEURONTIN [Concomitant]
     Active Substance: GABAPENTIN
  14. BIOFLAVONOID [Concomitant]
  15. VITAMIN C [Concomitant]
     Active Substance: ASCORBIC ACID

REACTIONS (2)
  - Nonspecific reaction [Unknown]
  - Drug interaction [Unknown]
